FAERS Safety Report 6074246-3 (Version None)
Quarter: 2009Q1

REPORT INFORMATION
  Report Type: 
  Country: None (occurrence: None)
  Receive Date: 20090211
  Receipt Date: 20090202
  Transmission Date: 20090719
  Serious: Yes (Other)
  Sender: FDA-Public Use
  Company Number: PHEH2009US01137

PATIENT
  Sex: Female

DRUGS (2)
  1. ZOMETA [Suspect]
     Dosage: 4MG MONTHLY
     Route: 042
     Dates: end: 20060801
  2. AREDIA [Suspect]

REACTIONS (9)
  - ARTIFICIAL CROWN PROCEDURE [None]
  - ORAL MUCOSAL ERYTHEMA [None]
  - OSTEOMYELITIS [None]
  - OSTEONECROSIS [None]
  - PALATAL OEDEMA [None]
  - PRIMARY SEQUESTRUM [None]
  - PURULENT DISCHARGE [None]
  - SOFT TISSUE INFLAMMATION [None]
  - TOOTH EXTRACTION [None]
